FAERS Safety Report 25298313 (Version 1)
Quarter: 2025Q2

REPORT INFORMATION
  Report Type: Spontaneous
  Country: US (occurrence: US)
  Receive Date: 20250512
  Receipt Date: 20250512
  Transmission Date: 20250717
  Serious: Yes (Other)
  Sender: BRISTOL-MYERS SQUIBB COMPANY
  Company Number: US-BRISTOL-MYERS SQUIBB COMPANY-2025-067242

PATIENT
  Age: 73 Year

DRUGS (1)
  1. SOTYKTU [Suspect]
     Active Substance: DEUCRAVACITINIB
     Indication: Product used for unknown indication
     Route: 048
     Dates: start: 20250407

REACTIONS (7)
  - Skin cancer [Unknown]
  - Hypertension [Unknown]
  - Myocardial infarction [Unknown]
  - Diabetes mellitus [Unknown]
  - Arthritis [Unknown]
  - Blood cholesterol increased [Unknown]
  - Skin disorder [Unknown]

NARRATIVE: CASE EVENT DATE: 20250428
